FAERS Safety Report 13853622 (Version 2)
Quarter: 2017Q3

REPORT INFORMATION
  Report Type: Spontaneous
  Country: BR (occurrence: BR)
  Receive Date: 20170810
  Receipt Date: 20170816
  Transmission Date: 20171127
  Serious: Yes (Other)
  Sender: FDA-Public Use
  Company Number: BR-JNJFOC-20170804657

PATIENT
  Sex: Female
  Weight: 74 kg

DRUGS (3)
  1. HALDOL [Suspect]
     Active Substance: HALOPERIDOL
     Indication: DELIRIUM
     Route: 065
  2. HALDOL [Suspect]
     Active Substance: HALOPERIDOL
     Indication: SCHIZOPHRENIA
     Route: 065
  3. PROMETHAZINE [Concomitant]
     Active Substance: PROMETHAZINE\PROMETHAZINE HYDROCHLORIDE
     Route: 065

REACTIONS (6)
  - Off label use [Unknown]
  - Schizophrenia [Unknown]
  - Drug dose omission [Unknown]
  - Product availability issue [Unknown]
  - Product use in unapproved indication [Unknown]
  - Delirium [Unknown]
